FAERS Safety Report 6671978-0 (Version None)
Quarter: 2010Q2

REPORT INFORMATION
  Report Type: 
  Country: None (occurrence: None)
  Receive Date: 20100407
  Receipt Date: 20100401
  Transmission Date: 20101027
  Serious: Yes (Death)
  Sender: FDA-Public Use
  Company Number: US-GILEAD-2010-0028282

PATIENT
  Sex: Male

DRUGS (6)
  1. LETAIRIS [Suspect]
     Indication: PULMONARY ARTERIAL HYPERTENSION
     Route: 048
     Dates: start: 20090407, end: 20100316
  2. REVATIO [Concomitant]
     Dates: start: 20090610, end: 20091222
  3. ADCIRCA [Concomitant]
  4. PREDNISONE TAB [Concomitant]
  5. QVAR 40 [Concomitant]
  6. NIACIN [Concomitant]

REACTIONS (1)
  - DEATH [None]
